FAERS Safety Report 6471866-9 (Version None)
Quarter: 2009Q4

REPORT INFORMATION
  Report Type: 
  Country: None (occurrence: None)
  Receive Date: 20091203
  Receipt Date: 20081202
  Transmission Date: 20100525
  Serious: No
  Sender: FDA-Public Use
  Company Number: US-AMGEN-KDL321765

PATIENT
  Sex: Male

DRUGS (4)
  1. ENBREL [Suspect]
     Indication: PSORIATIC ARTHROPATHY
     Route: 058
     Dates: start: 20040101
  2. ALLEGRA [Concomitant]
  3. ALEVE [Concomitant]
  4. PROVENTIL [Concomitant]

REACTIONS (1)
  - TUBERCULIN TEST POSITIVE [None]
